FAERS Safety Report 8355894-4 (Version None)
Quarter: 2012Q2

REPORT INFORMATION
  Report Type: 
  Country: None (occurrence: None)
  Receive Date: 20120510
  Receipt Date: 20120113
  Transmission Date: 20120825
  Serious: Yes (Other)
  Sender: FDA-Public Use
  Company Number: PIN-2012-00005

PATIENT

DRUGS (1)
  1. PHOTOFRIN [Suspect]
     Indication: OESOPHAGEAL SQUAMOUS CELL CARCINOMA
     Dosage: 2MG/KG I.V.
     Route: 042

REACTIONS (1)
  - OESOPHAGEAL FISTULA [None]
